FAERS Safety Report 12200219 (Version 7)
Quarter: 2016Q2

REPORT INFORMATION
  Report Type: Spontaneous
  Country: GB (occurrence: GB)
  Receive Date: 20160322
  Receipt Date: 20160523
  Transmission Date: 20160815
  Serious: Yes (Hospitalization)
  Sender: FDA-Public Use
  Company Number: GB-009507513-1603GBR009792

PATIENT
  Age: 19 Year
  Sex: Male

DRUGS (7)
  1. TESTOSTERONE. [Suspect]
     Active Substance: TESTOSTERONE
     Indication: PRODUCT USED FOR UNKNOWN INDICATION
     Dosage: UNK
     Route: 030
  2. FLUOXETINE [Suspect]
     Active Substance: FLUOXETINE HYDROCHLORIDE
     Indication: DEPRESSION
     Dosage: PRESCRIBED 15 CAPSULES OVERDOSED WITH 12 ON THE 18/02
     Route: 048
     Dates: start: 20160218, end: 20160223
  3. ACETAMINOPHEN. [Suspect]
     Active Substance: ACETAMINOPHEN
     Indication: PRODUCT USED FOR UNKNOWN INDICATION
     Dosage: 1 G, UNKNOWN
     Route: 065
     Dates: start: 20160218
  4. NANDROLONE DECANOATE. [Suspect]
     Active Substance: NANDROLONE DECANOATE
     Indication: PRODUCT USED FOR UNKNOWN INDICATION
     Dosage: UNK
     Route: 030
  5. FLUOXETINE [Suspect]
     Active Substance: FLUOXETINE HYDROCHLORIDE
     Dosage: 20 MG, QD
     Route: 048
     Dates: start: 201602
  6. SERTRALINE HYDROCHLORIDE. [Concomitant]
     Active Substance: SERTRALINE HYDROCHLORIDE
     Indication: DEPRESSION
     Dosage: UNK
     Dates: start: 201512
  7. ANABOLIC XTREME SUPERDROL [Suspect]
     Active Substance: DIETARY SUPPLEMENT
     Indication: PRODUCT USED FOR UNKNOWN INDICATION
     Dosage: UNK
     Route: 065

REACTIONS (9)
  - Overdose [Not Recovered/Not Resolved]
  - Liver function test abnormal [Recovering/Resolving]
  - Pruritus [Unknown]
  - Chromaturia [Unknown]
  - Suspected counterfeit product [Unknown]
  - Cholestasis [Unknown]
  - Jaundice [Recovering/Resolving]
  - Eye colour change [Unknown]
  - Yellow skin [Unknown]

NARRATIVE: CASE EVENT DATE: 20160218
